FAERS Safety Report 9226782 (Version 1)
Quarter: 2013Q2

REPORT INFORMATION
  Report Type: Spontaneous
  Country: US (occurrence: None)
  Receive Date: 20130410
  Receipt Date: 20130410
  Transmission Date: 20140414
  Serious: Yes (Hospitalization)
  Sender: FDA-Public Use
  Company Number: None

PATIENT
  Age: 60 Year
  Sex: Male
  Weight: 82 kg

DRUGS (6)
  1. CARBOPLATIN [Suspect]
     Route: 042
     Dates: start: 20130326
  2. TAXOL [Suspect]
     Route: 042
  3. LAPATINIB [Concomitant]
  4. VICODIN [Concomitant]
  5. METOPROLOL [Concomitant]
  6. COMPAZINE [Concomitant]

REACTIONS (3)
  - Oesophageal carcinoma [None]
  - Neoplasm recurrence [None]
  - Febrile neutropenia [None]
